FAERS Safety Report 5041320-X (Version None)
Quarter: 2006Q2

REPORT INFORMATION
  Report Type: 
  Country: None (occurrence: None)
  Receive Date: 20060626
  Receipt Date: 20060606
  Transmission Date: 20061013
  Serious: Yes (Hospitalization)
  Sender: FDA-Public Use
  Company Number: 2006PV014861

PATIENT
  Age: 60 Year
  Sex: Male
  Weight: 97.5234 kg

DRUGS (8)
  1. SYMLIN [Suspect]
     Indication: DIABETES MELLITUS NON-INSULIN-DEPENDENT
     Dosage: UNKNOWN; SC
     Route: 058
     Dates: end: 20060510
  2. PROTONIX [Concomitant]
  3. TOPROL-XL [Concomitant]
  4. ASPIRIN [Concomitant]
  5. LISINOPRIL [Concomitant]
  6. CARTIA XT [Concomitant]
  7. NORVASC [Concomitant]
  8. ULTRACET [Concomitant]

REACTIONS (14)
  - ANGINA UNSTABLE [None]
  - BLOOD INSULIN INCREASED [None]
  - CHEST PAIN [None]
  - CONDITION AGGRAVATED [None]
  - CONSTIPATION [None]
  - CORONARY ARTERY DISEASE [None]
  - COUGH [None]
  - DYSPNOEA EXERTIONAL [None]
  - FAECES DISCOLOURED [None]
  - HYPERHIDROSIS [None]
  - HYPOGLYCAEMIA [None]
  - LOSS OF CONSCIOUSNESS [None]
  - STRESS [None]
  - TREATMENT NONCOMPLIANCE [None]
